FAERS Safety Report 8951414 (Version 1)
Quarter: 2012Q4

REPORT INFORMATION
  Report Type: 
  Country: PH (occurrence: PH)
  Receive Date: 20121207
  Receipt Date: 20121207
  Transmission Date: 20130627
  Serious: Yes (Hospitalization)
  Sender: FDA-Public Use
  Company Number: PH-ABBOTT-12P-128-1016857-00

PATIENT

DRUGS (1)
  1. DEPAKENE [Suspect]
     Indication: PRODUCT USED FOR UNKNOWN INDICATION
     Dosage: 18mg/kg/day daily
     Route: 048

REACTIONS (1)
  - Jaundice [Unknown]
